FAERS Safety Report 9838256 (Version 1)
Quarter: 2014Q1

REPORT INFORMATION
  Report Type: Spontaneous
  Country: TR (occurrence: None)
  Receive Date: 20140116
  Receipt Date: 20140116
  Transmission Date: 20141002
  Serious: Yes (Disabling)
  Sender: FDA-Public Use
  Company Number: KAD201401-000018

PATIENT
  Age: 34 Year
  Sex: Female

DRUGS (1)
  1. RIBAVIRIN [Suspect]
     Indication: PROPHYLAXIS
     Route: 048

REACTIONS (4)
  - Obsessive-compulsive disorder [None]
  - Compulsive shopping [None]
  - Dizziness [None]
  - Disturbance in attention [None]
